FAERS Safety Report 4972793-6 (Version None)
Quarter: 2006Q2

REPORT INFORMATION
  Report Type: 
  Country: None (occurrence: None)
  Receive Date: 20060414
  Receipt Date: 20060308
  Transmission Date: 20061013
  Serious: Yes (Life-Threatening, Hospitalization)
  Sender: FDA-Public Use
  Company Number: FR-BRISTOL-MYERS SQUIBB COMPANY-13309729

PATIENT
  Age: 19 Year
  Sex: Male
  Weight: 57 kg

DRUGS (6)
  1. ABILIFY [Suspect]
     Indication: SCHIZOPHRENIA
     Route: 048
     Dates: start: 20051006, end: 20060102
  2. ABILIFY [Suspect]
     Indication: AUTISM
     Route: 048
     Dates: start: 20051006, end: 20060102
  3. LAMICTAL [Concomitant]
     Indication: EPILEPSY
     Dates: start: 20040311, end: 20060117
  4. EPITOMAX [Concomitant]
     Indication: EPILEPSY
     Dates: start: 20050127, end: 20060117
  5. NEXIUM [Concomitant]
     Indication: EPILEPSY
     Dates: start: 20060113, end: 20060321
  6. ATHYMIL [Concomitant]
     Indication: EPILEPSY
     Dates: start: 20060117

REACTIONS (3)
  - CONVULSION [None]
  - LEUKOCYTOSIS [None]
  - LUNG DISORDER [None]
